FAERS Safety Report 13615262 (Version 3)
Quarter: 2017Q4

REPORT INFORMATION
  Report Type: Report from Study
  Country: DE (occurrence: DE)
  Receive Date: 20170606
  Receipt Date: 20171024
  Transmission Date: 20180320
  Serious: Yes (Hospitalization)
  Sender: FDA-Public Use
  Company Number: DE-ROCHE-1935982

PATIENT
  Age: 64 Year
  Sex: Male
  Weight: 80.5 kg

DRUGS (8)
  1. ZOPICLON [Concomitant]
     Active Substance: ZOPICLONE
     Indication: INSOMNIA
     Route: 065
     Dates: start: 20170520, end: 20170725
  2. NAB-PACLITAXEL [Suspect]
     Active Substance: PACLITAXEL
     Indication: NON-SMALL CELL LUNG CANCER STAGE IV
     Dosage: THE DATE OF THE MOST RECENT DOSE OF PACLITAXEL ALBUMIN 158 MG PRIOR TO SAE ONSET WAS ADMINISTERED ON
     Route: 042
     Dates: start: 20161227
  3. ONDANSETRON [Concomitant]
     Active Substance: ONDANSETRON
     Indication: NAUSEA
     Route: 065
     Dates: start: 20170117, end: 20170514
  4. CLEXANE [Concomitant]
     Active Substance: ENOXAPARIN SODIUM
     Indication: THROMBOSIS PROPHYLAXIS
     Route: 065
     Dates: start: 20170515, end: 20170524
  5. ATEZOLIZUMAB. [Suspect]
     Active Substance: ATEZOLIZUMAB
     Indication: NON-SMALL CELL LUNG CANCER STAGE IV
     Dosage: THE DATE OF THE MOST RECENT DOSE OF ATEZOLIZUMAB 1200 MG PRIOR TO SAE ONSET WAS ADMINISTERED ON 09/M
     Route: 042
     Dates: start: 20161227
  6. DOMINAL (GERMANY) [Concomitant]
     Indication: INSOMNIA
     Route: 065
     Dates: start: 20170328, end: 20170519
  7. CARBOPLATIN. [Suspect]
     Active Substance: CARBOPLATIN
     Indication: NON-SMALL CELL LUNG CANCER STAGE IV
     Dosage: DOSE PER PROTOCOL AT AUC=6?THE DATE OF THE MOST RECENT DOSE OF CARBOPLATIN 360 MG PRIOR TO SAE ONSET
     Route: 042
     Dates: start: 20161227
  8. RAMIPRIL. [Concomitant]
     Active Substance: RAMIPRIL
     Indication: HYPERTENSION

REACTIONS (1)
  - Asthma [Not Recovered/Not Resolved]

NARRATIVE: CASE EVENT DATE: 20170502
